FAERS Safety Report 11097860 (Version 2)
Quarter: 2015Q2

REPORT INFORMATION
  Report Type: Spontaneous
  Country: US (occurrence: US)
  Receive Date: 20150507
  Receipt Date: 20150611
  Transmission Date: 20150821
  Serious: No
  Sender: FDA-Public Use
  Company Number: US-PFIZER INC-2015151878

PATIENT
  Age: 53 Year
  Sex: Female
  Weight: 91 kg

DRUGS (5)
  1. CELEBREX [Suspect]
     Active Substance: CELECOXIB
     Indication: ARTHRITIS
     Dosage: 200 MG, 2X/DAY
     Route: 048
     Dates: start: 200306
  2. GLUCOSAMINE CHONDROITIN MSM [Concomitant]
     Dosage: UNK
  3. ESCITALOPRAM [Concomitant]
     Active Substance: ESCITALOPRAM OXALATE
     Dosage: 30 MG, DAILY
  4. CYCLOBENZAPRINE [Concomitant]
     Active Substance: CYCLOBENZAPRINE
     Dosage: 10 MG, 2X/DAY
  5. LYRICA [Concomitant]
     Active Substance: PREGABALIN
     Dosage: 100 MG TWICE A DAY AND 150MG ONCE A DAY, 3X/DAY

REACTIONS (1)
  - Drug ineffective [Unknown]
